APPROVED DRUG PRODUCT: PIROXICAM
Active Ingredient: PIROXICAM
Strength: 10MG
Dosage Form/Route: CAPSULE;ORAL
Application: A208991 | Product #001
Applicant: BRECKENRIDGE PHARMACEUTICAL INC
Approved: Feb 21, 2018 | RLD: No | RS: No | Type: DISCN